FAERS Safety Report 4914801-4 (Version None)
Quarter: 2006Q1

REPORT INFORMATION
  Report Type: 
  Country: None (occurrence: None)
  Receive Date: 20060113
  Receipt Date: 20051021
  Transmission Date: 20060701
  Serious: No
  Sender: FDA-Public Use
  Company Number: 2005SP003626

PATIENT
  Age: 48 Year
  Sex: Female
  Weight: 80.2867 kg

DRUGS (9)
  1. LUNESTA [Suspect]
     Indication: INSOMNIA
     Dosage: SEE IMAGE
     Route: 048
     Dates: start: 20050101, end: 20050101
  2. LUNESTA [Suspect]
     Indication: INSOMNIA
     Dosage: SEE IMAGE
     Route: 048
     Dates: start: 20050101, end: 20050101
  3. LUNESTA [Suspect]
     Indication: INSOMNIA
     Dosage: SEE IMAGE
     Route: 048
     Dates: start: 20050401
  4. ELAVIL [Suspect]
     Indication: NEURALGIA
     Dates: start: 20050801, end: 20051001
  5. ZANTAC [Concomitant]
  6. MYCARDOL [Concomitant]
  7. PROMETRIUM [Concomitant]
  8. NEURONTIN [Concomitant]
  9. ANTIBIOTICS [Concomitant]

REACTIONS (2)
  - DRY MOUTH [None]
  - ORAL DISCOMFORT [None]
